FAERS Safety Report 13120585 (Version 7)
Quarter: 2018Q4

REPORT INFORMATION
  Report Type: Spontaneous
  Country: US (occurrence: US)
  Receive Date: 20170117
  Receipt Date: 20181226
  Transmission Date: 20190204
  Serious: Yes (Hospitalization)
  Sender: FDA-Public Use
  Company Number: US-PFIZER INC-2017017925

PATIENT
  Age: 56 Year
  Sex: Female

DRUGS (4)
  1. PREMARIN [Concomitant]
     Active Substance: ESTROGENS, CONJUGATED
     Dosage: UNK
  2. RELPAX [Suspect]
     Active Substance: ELETRIPTAN HYDROBROMIDE
     Dosage: 40 MG, (1 AT HEADACHE ONSET, REPEAT IN 2 HOURS IF NEEDED. 2 PER 24 HOURS MAXIMUM)
     Route: 048
     Dates: start: 20181210
  3. RELPAX [Suspect]
     Active Substance: ELETRIPTAN HYDROBROMIDE
     Indication: MIGRAINE
     Dosage: 40 MG, UNK (^6 BY 2^)
  4. SKELAXIN [Concomitant]
     Active Substance: METAXALONE
     Dosage: 800 MG, UNK

REACTIONS (9)
  - Back pain [Unknown]
  - Pain [Unknown]
  - Nausea [Unknown]
  - Concussion [Unknown]
  - Malaise [Unknown]
  - Migraine [Unknown]
  - Fall [Unknown]
  - Condition aggravated [Unknown]
  - Scratch [Unknown]
